FAERS Safety Report 4645307-8 (Version None)
Quarter: 2005Q2

REPORT INFORMATION
  Report Type: 
  Country: None (occurrence: None)
  Receive Date: 20050331
  Receipt Date: 20050221
  Transmission Date: 20051028
  Serious: No
  Sender: FDA-Public Use
  Company Number: 05P-163-0291708-00

PATIENT
  Age: 63 Year
  Sex: Female
  Weight: 41.7309 kg

DRUGS (13)
  1. HUMIRA [Suspect]
     Indication: RHEUMATOID ARTHRITIS
     Dosage: 40 MG, 1 IN 2 WK, SUBCUTANEOUS
     Route: 058
     Dates: start: 20050126, end: 20050209
  2. PROVELLA-14 [Concomitant]
  3. MEDICAGO SATIVA [Concomitant]
  4. MULTI-VITAMINS [Concomitant]
  5. ASCORBIC ACID [Concomitant]
  6. ZINC [Concomitant]
  7. BECOSYM FORTE [Concomitant]
  8. BLUE GREEN ALGAE [Concomitant]
  9. CALCIUM GLUCONATE [Concomitant]
  10. ALENDRONATE SODIUM [Concomitant]
  11. MSM [Concomitant]
  12. GLUCOSAMINE [Concomitant]
  13. TYLENOL PM [Concomitant]

REACTIONS (3)
  - BRONCHITIS [None]
  - JOINT SWELLING [None]
  - SINUSITIS [None]
